FAERS Safety Report 9725782 (Version 1)
Quarter: 2013Q4

REPORT INFORMATION
  Report Type: Spontaneous
  Country: FR (occurrence: FR)
  Receive Date: 20131203
  Receipt Date: 20131203
  Transmission Date: 20140711
  Serious: Yes (Hospitalization)
  Sender: FDA-Public Use
  Company Number: FR-ELI_LILLY_AND_COMPANY-FR201311007332

PATIENT
  Age: 69 Year
  Sex: Male

DRUGS (3)
  1. GEMZAR [Suspect]
     Dosage: 2 G, UNKNOWN
     Route: 042
  2. MABTHERA [Suspect]
     Dosage: 750 MG, UNKNOWN
     Route: 042
  3. ELOXATINE [Suspect]
     Dosage: 200 MG, UNKNOWN
     Route: 042

REACTIONS (3)
  - Thrombocytopenia [Recovered/Resolved]
  - Cystitis [Unknown]
  - Leukocyturia [Unknown]
